FAERS Safety Report 15698877 (Version 2)
Quarter: 2019Q2

REPORT INFORMATION
  Report Type: Spontaneous
  Country: US (occurrence: US)
  Receive Date: 20181207
  Receipt Date: 20190628
  Transmission Date: 20190711
  Serious: No
  Sender: FDA-Public Use
  Company Number: US-PFIZER INC-2018500457

PATIENT
  Age: 14 Year
  Sex: Female
  Weight: 49.89 kg

DRUGS (1)
  1. GENOTROPIN [Suspect]
     Active Substance: SOMATROPIN
     Indication: GROWTH DISORDER
     Dosage: 1.5 MG, EVERY DAY ONCE IN THE EVENING
     Dates: start: 20180218

REACTIONS (3)
  - Blood calcium decreased [Unknown]
  - Drug dose omission by device [Unknown]
  - Device issue [Unknown]
